FAERS Safety Report 14906246 (Version 1)
Quarter: 2018Q2

REPORT INFORMATION
  Report Type: Spontaneous
  Country: US (occurrence: US)
  Receive Date: 20180517
  Receipt Date: 20180517
  Transmission Date: 20180711
  Serious: No
  Sender: FDA-Public Use
  Company Number: US-SA-2018SA101073

PATIENT
  Age: 67 Year
  Sex: Male

DRUGS (4)
  1. SOLOSTAR [Suspect]
     Active Substance: DEVICE
     Indication: TYPE 2 DIABETES MELLITUS
     Route: 051
     Dates: start: 2016
  2. GLYBURIDE. [Concomitant]
     Active Substance: GLYBURIDE
  3. LANTUS SOLOSTAR [Suspect]
     Active Substance: INSULIN GLARGINE
     Indication: TYPE 2 DIABETES MELLITUS
     Route: 051
     Dates: start: 2016
  4. METFORMIN [Concomitant]
     Active Substance: METFORMIN HYDROCHLORIDE

REACTIONS (7)
  - Impaired healing [Unknown]
  - Influenza [Unknown]
  - Product storage error [Unknown]
  - Blood glucose increased [Unknown]
  - Drug dose omission [Unknown]
  - Limb discomfort [Unknown]
  - Skin fissures [Recovered/Resolved]

NARRATIVE: CASE EVENT DATE: 201712
